FAERS Safety Report 6050029-5 (Version None)
Quarter: 2009Q1

REPORT INFORMATION
  Report Type: 
  Country: None (occurrence: None)
  Receive Date: 20090116
  Receipt Date: 20090105
  Transmission Date: 20090719
  Serious: Yes (Death, Hospitalization)
  Sender: FDA-Public Use
  Company Number: KV200900011

PATIENT
  Age: 59 Year
  Sex: Male

DRUGS (2)
  1. ISOSORBIDE MONONITRATE [Suspect]
     Indication: CARDIAC DISORDER
     Dosage: 60 MG, BID, ORAL
     Route: 048
     Dates: end: 20081101
  2. MULTIPLE UNKNOWN MEDICATIONS [Concomitant]

REACTIONS (7)
  - CONFUSIONAL STATE [None]
  - HEART RATE IRREGULAR [None]
  - LETHARGY [None]
  - MUSCLE TWITCHING [None]
  - PRODUCT QUALITY ISSUE [None]
  - RESPIRATORY DISORDER [None]
  - TREMOR [None]
